FAERS Safety Report 4954431-1 (Version None)
Quarter: 2006Q1

REPORT INFORMATION
  Report Type: 
  Country: None (occurrence: None)
  Receive Date: 20060322
  Receipt Date: 20060318
  Transmission Date: 20060701
  Serious: Yes (Death)
  Sender: FDA-Public Use
  Company Number: J081-002-002206

PATIENT
  Age: 75 Year
  Sex: Male

DRUGS (7)
  1. ARICEPT [Suspect]
     Dosage: 5 MG, 1 IN 1 D, ORAL
     Route: 048
  2. PHENYTOIN [Concomitant]
  3. PHENOBARBITAL TAB [Concomitant]
  4. SYMMETREL (AMANATADINE HYDROCHLORIDE) [Concomitant]
  5. SEPAMIT-R (NIFEDIPINE) [Concomitant]
  6. DIOVAN [Concomitant]
  7. GABLON (BACLOFEN) [Concomitant]

REACTIONS (2)
  - SUDDEN DEATH [None]
  - TREMOR [None]
